FAERS Safety Report 14868064 (Version 1)
Quarter: 2018Q2

REPORT INFORMATION
  Report Type: Spontaneous
  Country: FR (occurrence: FR)
  Receive Date: 20180509
  Receipt Date: 20180509
  Transmission Date: 20180711
  Serious: Yes (Hospitalization)
  Sender: FDA-Public Use
  Company Number: FR-BAUSCH-BL-2018-012951

PATIENT
  Age: 65 Year
  Sex: Male

DRUGS (5)
  1. ATARAX [Suspect]
     Active Substance: HYDROXYZINE HYDROCHLORIDE
     Indication: POISONING DELIBERATE
     Dosage: UNSPECIFIED
     Route: 048
     Dates: start: 20180402, end: 20180403
  2. ZOPICLONE [Suspect]
     Active Substance: ZOPICLONE
     Indication: POISONING DELIBERATE
     Dosage: UNSPECIFIED
     Route: 048
     Dates: start: 20180402, end: 20180403
  3. PREVISCAN (FLUINDIONE) [Suspect]
     Active Substance: FLUINDIONE
     Indication: POISONING DELIBERATE
     Dosage: UNSPECIFIED?TABLET BREAKABLE
     Route: 048
     Dates: start: 20180402, end: 20180403
  4. VENLAFAXINE [Suspect]
     Active Substance: VENLAFAXINE HYDROCHLORIDE
     Indication: POISONING DELIBERATE
     Dosage: UNSPECIFIED
     Route: 048
     Dates: start: 20180402, end: 20180403
  5. SEROPLEX [Suspect]
     Active Substance: ESCITALOPRAM OXALATE
     Indication: POISONING DELIBERATE
     Dosage: UNSPECIFIED
     Route: 048
     Dates: start: 20180402, end: 20180403

REACTIONS (2)
  - Poisoning deliberate [None]
  - Altered state of consciousness [Recovered/Resolved]

NARRATIVE: CASE EVENT DATE: 20180403
